FAERS Safety Report 4445875-5 (Version None)
Quarter: 2004Q3

REPORT INFORMATION
  Report Type: 
  Country: None (occurrence: None)
  Receive Date: 20040907
  Receipt Date: 20040831
  Transmission Date: 20050211
  Serious: Yes (Life-Threatening)
  Sender: FDA-Public Use
  Company Number: 2004SE04745

PATIENT
  Age: 21 Year
  Sex: Female
  Weight: 42 kg

DRUGS (8)
  1. BLOPRESS [Suspect]
     Indication: AORTIC VALVE INCOMPETENCE
     Dosage: 2 MG QD PO
     Route: 048
     Dates: start: 20040802, end: 20040812
  2. OMEPRAL [Suspect]
     Indication: GASTRIC ULCER
     Dosage: 10 MG DAILY PO
     Route: 048
     Dates: start: 20040625, end: 20040812
  3. 8-HOUR BAYER [Suspect]
     Indication: PROPHYLAXIS
     Dosage: 100 MG DAILY PO
     Route: 048
     Dates: start: 20040625, end: 20040812
  4. MAGNESIUM OXIDE [Suspect]
     Indication: CONSTIPATION
     Dosage: 2 G DAILY PO
     Route: 048
     Dates: start: 20040625, end: 20040812
  5. PREDNISOLONE [Suspect]
     Indication: TAKAYASU'S ARTERITIS
     Dosage: 40 MG DAILY PO
     Route: 048
     Dates: start: 20040625
  6. PREDONINE [Suspect]
     Indication: TAKAYASU'S ARTERITIS
     Dosage: 35 MG DAILY PO
     Route: 048
  7. PREDONINE [Suspect]
     Indication: TAKAYASU'S ARTERITIS
     Dosage: 30 MG DAILY PO
     Route: 048
  8. BAKTAR [Suspect]
     Indication: INFECTION PROPHYLAXIS
     Dosage: 480 MG DAILY PO
     Route: 048
     Dates: start: 20040707, end: 20040812

REACTIONS (2)
  - AGRANULOCYTOSIS [None]
  - AORTIC VALVE INCOMPETENCE [None]
